FAERS Safety Report 6876285-9 (Version None)
Quarter: 2010Q3

REPORT INFORMATION
  Report Type: 
  Country: None (occurrence: None)
  Receive Date: 20100727
  Receipt Date: 20100722
  Transmission Date: 20110219
  Serious: Yes (Death)
  Sender: FDA-Public Use
  Company Number: B0666198A

PATIENT
  Age: 81 Year
  Sex: Male

DRUGS (2)
  1. AMOXICILLIN AND CLAVULANATE POTASSIUM [Suspect]
     Indication: URINARY TRACT INFECTION
  2. ETHINYL ESTRADIOL [Concomitant]
     Indication: PROSTATE CANCER

REACTIONS (6)
  - CONDITION AGGRAVATED [None]
  - HEPATIC ENCEPHALOPATHY [None]
  - HEPATIC FAILURE [None]
  - HEPATITIS CHOLESTATIC [None]
  - HEPATOTOXICITY [None]
  - JAUNDICE CHOLESTATIC [None]
